FAERS Safety Report 17650373 (Version 6)
Quarter: 2021Q2

REPORT INFORMATION
  Report Type: Spontaneous
  Country: US (occurrence: US)
  Receive Date: 20200409
  Receipt Date: 20210607
  Transmission Date: 20210716
  Serious: Yes (Hospitalization, Other)
  Sender: FDA-Public Use
  Company Number: US-PFIZER INC-2020144332

PATIENT
  Age: 64 Year
  Sex: Male
  Weight: 86.18 kg

DRUGS (4)
  1. DILANTIN [Suspect]
     Active Substance: PHENYTOIN
     Indication: SEIZURE
     Dosage: UNK
     Dates: start: 1966
  2. DILANTIN [Suspect]
     Active Substance: PHENYTOIN
     Dosage: UNK, 2X/DAY (TWICE DAILY FOR 51 YEARS/TWICE EVERY DAY)
     Dates: start: 1966, end: 20160828
  3. DILANTIN [Suspect]
     Active Substance: PHENYTOIN
     Indication: EPILEPSY
     Dosage: UNK
     Dates: start: 1997, end: 2014
  4. KEPPRA [Suspect]
     Active Substance: LEVETIRACETAM
     Indication: SEIZURE
     Dosage: 750 MG, 2X/DAY
     Route: 048
     Dates: start: 2017

REACTIONS (12)
  - Weight decreased [Unknown]
  - Bone loss [Not Recovered/Not Resolved]
  - Mental disorder [Unknown]
  - Tooth loss [Not Recovered/Not Resolved]
  - Jaw disorder [Not Recovered/Not Resolved]
  - Blindness unilateral [Not Recovered/Not Resolved]
  - Gingival disorder [Not Recovered/Not Resolved]
  - Loose tooth [Not Recovered/Not Resolved]
  - Pain [Unknown]
  - Fall [Not Recovered/Not Resolved]
  - Seizure [Not Recovered/Not Resolved]
  - Mastication disorder [Unknown]

NARRATIVE: CASE EVENT DATE: 2014
